FAERS Safety Report 12733579 (Version 1)
Quarter: 2016Q3

REPORT INFORMATION
  Report Type: Spontaneous
  Country: NO (occurrence: NO)
  Receive Date: 20160912
  Receipt Date: 20160912
  Transmission Date: 20161109
  Serious: Yes (Other)
  Sender: FDA-Public Use
  Company Number: NO-AUROBINDO-AUR-APL-2016-11308

PATIENT
  Age: 51 Year
  Sex: Female

DRUGS (3)
  1. XARELTO [Suspect]
     Active Substance: RIVAROXABAN
     Indication: PRODUCT USED FOR UNKNOWN INDICATION
     Route: 065
  2. NAPROXEN. [Suspect]
     Active Substance: NAPROXEN
     Indication: PRODUCT USED FOR UNKNOWN INDICATION
     Route: 065
  3. ESOMEPRAZOLE [Suspect]
     Active Substance: ESOMEPRAZOLE
     Indication: PRODUCT USED FOR UNKNOWN INDICATION
     Route: 065

REACTIONS (14)
  - Arthralgia [Unknown]
  - Deep vein thrombosis [Unknown]
  - Cervical vertebral fracture [Unknown]
  - Joint swelling [Unknown]
  - Neurosurgery [Unknown]
  - Vertebral column mass [Unknown]
  - Fall [Unknown]
  - Bone graft [Unknown]
  - Limb discomfort [Unknown]
  - Extradural haematoma [Unknown]
  - Osteosynthesis [Unknown]
  - Fibrin D dimer increased [Unknown]
  - Spinal decompression [Unknown]
  - Back pain [Unknown]
